FAERS Safety Report 7905184-6 (Version None)
Quarter: 2011Q4

REPORT INFORMATION
  Report Type: 
  Country: None (occurrence: None)
  Receive Date: 20111109
  Receipt Date: 20111031
  Transmission Date: 20120403
  Serious: Yes (Life-Threatening, Hospitalization)
  Sender: FDA-Public Use
  Company Number: TR-BAYER-2011-092067

PATIENT
  Age: 31 Year
  Sex: Female

DRUGS (2)
  1. AVELOX [Suspect]
     Dosage: 400 MG, QD
     Route: 048
  2. NUROFEN COLD + FLU [Concomitant]

REACTIONS (5)
  - HYPERTENSION [None]
  - MUSCLE CONTRACTIONS INVOLUNTARY [None]
  - ERYTHEMA [None]
  - TACHYCARDIA [None]
  - HYPOAESTHESIA [None]
